FAERS Safety Report 22654211 (Version 1)
Quarter: 2023Q2

REPORT INFORMATION
  Report Type: Spontaneous
  Country: US (occurrence: US)
  Receive Date: 20230629
  Receipt Date: 20230629
  Transmission Date: 20230721
  Serious: No
  Sender: FDA-Public Use
  Company Number: US-AMNEAL PHARMACEUTICALS-2022-AMRX-02011

PATIENT
  Sex: Female
  Weight: 88.45 kg

DRUGS (1)
  1. NITROFURANTOIN [Suspect]
     Active Substance: NITROFURANTOIN
     Indication: Product used for unknown indication
     Dosage: 1 CAPSULES, 1 /DAY
     Route: 048

REACTIONS (2)
  - Drug ineffective [Unknown]
  - Condition aggravated [Unknown]
